FAERS Safety Report 18345362 (Version 1)
Quarter: 2020Q4

REPORT INFORMATION
  Report Type: Spontaneous
  Country: US (occurrence: US)
  Receive Date: 20201005
  Receipt Date: 20201005
  Transmission Date: 20210114
  Serious: No
  Sender: FDA-Public Use
  Company Number: US-ALLERGAN-1936788US

PATIENT
  Sex: Female

DRUGS (4)
  1. LINZESS [Suspect]
     Active Substance: LINACLOTIDE
     Indication: CONSTIPATION
     Dosage: UNK
     Route: 065
     Dates: start: 2019
  2. UNSPECIFIED CORTISONE INJECTION [Concomitant]
     Indication: ARTHROPATHY
     Dosage: EVERY 3 MONTHS
  3. CLARITIN [Concomitant]
     Active Substance: LORATADINE
  4. OCALIVA [Suspect]
     Active Substance: OBETICHOLIC ACID
     Indication: PRIMARY BILIARY CHOLANGITIS
     Dosage: 5 MG, QD
     Route: 048
     Dates: start: 20190222

REACTIONS (1)
  - Diarrhoea [Recovering/Resolving]
